FAERS Safety Report 11415781 (Version 1)
Quarter: 2015Q3

REPORT INFORMATION
  Report Type: Spontaneous
  Country: US (occurrence: None)
  Receive Date: 20150824
  Receipt Date: 20150824
  Transmission Date: 20151125
  Serious: No
  Sender: FDA-Public Use
  Company Number: None

PATIENT
  Age: 21 Year
  Sex: Female
  Weight: 49.9 kg

DRUGS (3)
  1. IMITREX [Suspect]
     Active Substance: SUMATRIPTAN\SUMATRIPTAN SUCCINATE
     Indication: BASILAR MIGRAINE
     Dosage: 1, TAKE ANOTHER 2 HRS LATER?AS NEEDED ?TAKEN BY MOUTH
     Route: 048
     Dates: start: 20150801, end: 20150808
  2. DEPO-PROVERA [Concomitant]
     Active Substance: MEDROXYPROGESTERONE ACETATE
  3. MAGNESIUM [Concomitant]
     Active Substance: MAGNESIUM

REACTIONS (5)
  - Cold sweat [None]
  - Palpitations [None]
  - Muscle tightness [None]
  - Limb discomfort [None]
  - Musculoskeletal stiffness [None]

NARRATIVE: CASE EVENT DATE: 20150808
